FAERS Safety Report 17038275 (Version 1)
Quarter: 2019Q4

REPORT INFORMATION
  Report Type: Spontaneous
  Country: US (occurrence: US)
  Receive Date: 20191115
  Receipt Date: 20191115
  Transmission Date: 20200122
  Serious: Yes (Other)
  Sender: FDA-Public Use
  Company Number: US-COOPERSURGICAL, INC.-US-2019CPS002536

PATIENT
  Age: 27 Year
  Sex: Female
  Weight: 68.27 kg

DRUGS (2)
  1. PARAGARD T 380A [Suspect]
     Active Substance: COPPER
     Indication: CONTRACEPTION
     Dosage: UNK
     Route: 015
     Dates: start: 2014, end: 20190724
  2. PRENATAL VITAMINS                  /02014401/ [Concomitant]
     Active Substance: VITAMINS
     Indication: PREGNANCY
     Route: 065

REACTIONS (14)
  - Rectal haemorrhage [Unknown]
  - Device dislocation [Recovered/Resolved]
  - Embedded device [Recovered/Resolved]
  - Uterine perforation [Recovered/Resolved]
  - Pelvic fluid collection [Unknown]
  - Abdominal pain lower [Unknown]
  - Abdominal pain [Unknown]
  - Female genital tract fistula [Unknown]
  - Drug ineffective [Recovered/Resolved]
  - Flank pain [Unknown]
  - Diarrhoea [Unknown]
  - Device expulsion [Recovered/Resolved]
  - Device material issue [Unknown]
  - Pregnancy with contraceptive device [Recovered/Resolved]

NARRATIVE: CASE EVENT DATE: 20170217
